FAERS Safety Report 23886779 (Version 1)
Quarter: 2024Q2

REPORT INFORMATION
  Report Type: Report from Study
  Country: US (occurrence: US)
  Receive Date: 20240522
  Receipt Date: 20240522
  Transmission Date: 20240716
  Serious: Yes (Hospitalization, Other)
  Sender: FDA-Public Use
  Company Number: US-ABBVIE-5652483

PATIENT
  Age: 33 Year
  Sex: Female

DRUGS (1)
  1. HUMIRA [Suspect]
     Active Substance: ADALIMUMAB
     Indication: Ankylosing spondylitis
     Dosage: FORM STRENGTH UNITS:40 MILLIGRAM?CITRATE FREE
     Route: 058
     Dates: start: 20240126, end: 20240223

REACTIONS (2)
  - Urosepsis [Unknown]
  - Seizure [Unknown]

NARRATIVE: CASE EVENT DATE: 20240210
